FAERS Safety Report 17113838 (Version 2)
Quarter: 2021Q1

REPORT INFORMATION
  Report Type: Spontaneous
  Country: US (occurrence: US)
  Receive Date: 20191205
  Receipt Date: 20210217
  Transmission Date: 20210419
  Serious: Yes (Other)
  Sender: FDA-Public Use
  Company Number: US-ASTRAZENECA-2019SF73424

PATIENT
  Age: 50 Year
  Sex: Female

DRUGS (54)
  1. CARVEDILOL. [Concomitant]
     Active Substance: CARVEDILOL
     Dates: start: 20150909
  2. PROAIR HFA [Concomitant]
     Active Substance: ALBUTEROL SULFATE
     Dates: start: 20150504
  3. MONTELUKAST [Concomitant]
     Active Substance: MONTELUKAST SODIUM
     Dates: start: 20160716
  4. DICYCLOMINE [Concomitant]
     Active Substance: DICYCLOMINE HYDROCHLORIDE
  5. FENTANYL. [Concomitant]
     Active Substance: FENTANYL
  6. PRILOSEC [Suspect]
     Active Substance: OMEPRAZOLE MAGNESIUM
     Indication: DYSPEPSIA
     Route: 048
     Dates: start: 199901, end: 201812
  7. PREVACID [Suspect]
     Active Substance: LANSOPRAZOLE
     Indication: DYSPEPSIA
     Route: 065
     Dates: start: 199901, end: 201812
  8. GLIPIZIDE. [Concomitant]
     Active Substance: GLIPIZIDE
     Dates: start: 20111227
  9. FUROSEMIDE. [Concomitant]
     Active Substance: FUROSEMIDE
     Dates: start: 20150723
  10. CLINDAMYCIN. [Concomitant]
     Active Substance: CLINDAMYCIN
     Dates: start: 20150921
  11. POTASSIUM CHLORIDE. [Concomitant]
     Active Substance: POTASSIUM CHLORIDE
  12. NITROGLYCERIN. [Concomitant]
     Active Substance: NITROGLYCERIN
  13. PRILOSEC [Suspect]
     Active Substance: OMEPRAZOLE MAGNESIUM
     Indication: DYSPEPSIA
     Route: 065
     Dates: start: 2019
  14. PREVACID [Suspect]
     Active Substance: LANSOPRAZOLE
     Indication: DYSPEPSIA
     Route: 065
     Dates: start: 1999, end: 2018
  15. METFORMIN [Concomitant]
     Active Substance: METFORMIN HYDROCHLORIDE
     Dates: start: 20111227
  16. FLUCONAZOLE. [Concomitant]
     Active Substance: FLUCONAZOLE
     Dates: start: 20130717
  17. HUMALOG [Concomitant]
     Active Substance: INSULIN LISPRO
     Dates: start: 20151001
  18. TIZANIDINE. [Concomitant]
     Active Substance: TIZANIDINE
  19. AZITHROMYCIN ANHYDROUS. [Concomitant]
     Active Substance: AZITHROMYCIN ANHYDROUS
  20. ISOSORBIDE. [Concomitant]
     Active Substance: ISOSORBIDE
  21. LISINOPRIL. [Concomitant]
     Active Substance: LISINOPRIL
     Dates: start: 20111227
  22. CYCLOBENZAPRINE. [Concomitant]
     Active Substance: CYCLOBENZAPRINE
     Dates: start: 20130328
  23. CETRIZINE [Concomitant]
     Active Substance: CETIRIZINE HYDROCHLORIDE
  24. PRILOSEC [Suspect]
     Active Substance: OMEPRAZOLE MAGNESIUM
     Indication: DYSPEPSIA
     Dosage: GENERIC
     Route: 065
     Dates: start: 20111227
  25. ZANTAC [Concomitant]
     Active Substance: RANITIDINE HYDROCHLORIDE
     Dates: start: 2016
  26. LIDOCAINE. [Concomitant]
     Active Substance: LIDOCAINE
     Dates: start: 20130420
  27. TRAMADOL. [Concomitant]
     Active Substance: TRAMADOL
     Dates: start: 20130510
  28. LOSARTAN. [Concomitant]
     Active Substance: LOSARTAN
     Dates: start: 20160716
  29. CITALOPRAM [Concomitant]
     Active Substance: CITALOPRAM HYDROBROMIDE
  30. ACTOS [Concomitant]
     Active Substance: PIOGLITAZONE HYDROCHLORIDE
  31. VERAPAMIL [Concomitant]
     Active Substance: VERAPAMIL HYDROCHLORIDE
  32. ATROPIN [Concomitant]
     Active Substance: ATROPINE
  33. METRONIDAZOLE. [Concomitant]
     Active Substance: METRONIDAZOLE
     Dates: start: 20150504
  34. IRBESARTAN. [Concomitant]
     Active Substance: IRBESARTAN
     Dates: start: 20150909
  35. GLIPIZIDE. [Concomitant]
     Active Substance: GLIPIZIDE
     Dates: start: 20150405
  36. METOLAZONE. [Concomitant]
     Active Substance: METOLAZONE
  37. ALBUTEROL. [Concomitant]
     Active Substance: ALBUTEROL
  38. PRILOSEC [Suspect]
     Active Substance: OMEPRAZOLE MAGNESIUM
     Indication: DYSPEPSIA
     Route: 048
     Dates: start: 1999, end: 2018
  39. PRILOSEC [Suspect]
     Active Substance: OMEPRAZOLE MAGNESIUM
     Indication: DYSPEPSIA
     Dosage: GENERIC
     Route: 065
     Dates: start: 20180827
  40. BUPROPION. [Concomitant]
     Active Substance: BUPROPION
     Dates: start: 20150909
  41. BUPROPION. [Concomitant]
     Active Substance: BUPROPION
  42. ACETAMINOPHEN. [Concomitant]
     Active Substance: ACETAMINOPHEN
  43. COMBIVENT [Concomitant]
     Active Substance: ALBUTEROL SULFATE\IPRATROPIUM BROMIDE
  44. HEPARIN [Concomitant]
     Active Substance: HEPARIN SODIUM
  45. PRILOSEC [Suspect]
     Active Substance: OMEPRAZOLE MAGNESIUM
     Indication: DYSPEPSIA
     Dosage: GENERIC
     Route: 065
     Dates: start: 20160919
  46. PREVACID [Suspect]
     Active Substance: LANSOPRAZOLE
     Indication: DYSPEPSIA
     Route: 065
     Dates: start: 20081006
  47. PROTONIX [Suspect]
     Active Substance: PANTOPRAZOLE SODIUM
     Indication: DYSPEPSIA
     Route: 065
     Dates: start: 2000
  48. LANTUS [Concomitant]
     Active Substance: INSULIN GLARGINE
     Dates: start: 20150713
  49. GABAPENTIN. [Concomitant]
     Active Substance: GABAPENTIN
  50. VITAMIN D [Concomitant]
     Active Substance: VITAMIN D NOS
  51. TORSEMIDE. [Concomitant]
     Active Substance: TORSEMIDE
  52. ADVAIR HFA [Concomitant]
     Active Substance: FLUTICASONE PROPIONATE\SALMETEROL XINAFOATE
  53. DICLOFENAC [Concomitant]
     Active Substance: DICLOFENAC
  54. ISOVUE [Concomitant]
     Active Substance: IOPAMIDOL

REACTIONS (3)
  - Acute kidney injury [Recovered/Resolved]
  - Dyspepsia [Not Recovered/Not Resolved]
  - Chronic kidney disease [Not Recovered/Not Resolved]

NARRATIVE: CASE EVENT DATE: 2014
